FAERS Safety Report 24622573 (Version 1)
Quarter: 2024Q4

REPORT INFORMATION
  Report Type: Spontaneous
  Country: US (occurrence: US)
  Receive Date: 20241115
  Receipt Date: 20241115
  Transmission Date: 20250115
  Serious: Yes (Other)
  Sender: ACCORD
  Company Number: US-MLMSERVICE-20241030-PI244587-00101-1

PATIENT
  Age: 59 Year
  Sex: Male

DRUGS (3)
  1. CISPLATIN [Suspect]
     Active Substance: CISPLATIN
     Indication: Thymoma
  2. ADRIAMYCIN [Suspect]
     Active Substance: DOXORUBICIN HYDROCHLORIDE
     Indication: Thymoma
  3. CYTOXAN [Suspect]
     Active Substance: CYCLOPHOSPHAMIDE
     Indication: Thymoma

REACTIONS (5)
  - Pneumocystis jirovecii pneumonia [Unknown]
  - B-lymphocyte count decreased [Not Recovered/Not Resolved]
  - Hypogammaglobulinaemia [Recovering/Resolving]
  - CD4 lymphocytes decreased [Recovered/Resolved]
  - Off label use [Unknown]
